FAERS Safety Report 5137751-X (Version None)
Quarter: 2006Q4

REPORT INFORMATION
  Report Type: 
  Country: None (occurrence: None)
  Receive Date: 20061030
  Receipt Date: 20060104
  Transmission Date: 20070319
  Serious: No
  Sender: FDA-Public Use
  Company Number: US-GLAXOSMITHKLINE-A0587732A

PATIENT
  Age: 64 Year
  Sex: Female

DRUGS (6)
  1. ADVAIR HFA [Suspect]
     Indication: ASTHMA
     Route: 055
     Dates: start: 20050701, end: 20050701
  2. MYSOLINE [Concomitant]
  3. DILANTIN [Concomitant]
  4. FOSAMAX [Concomitant]
  5. RANITIDINE [Concomitant]
  6. ACCUPRIL [Concomitant]

REACTIONS (2)
  - DYSPNOEA [None]
  - PHARMACEUTICAL PRODUCT COMPLAINT [None]
